FAERS Safety Report 7654630-4 (Version None)
Quarter: 2011Q3

REPORT INFORMATION
  Report Type: 
  Country: None (occurrence: None)
  Receive Date: 20110803
  Receipt Date: 20110721
  Transmission Date: 20111222
  Serious: Yes (Other)
  Sender: FDA-Public Use
  Company Number: US-CELGENEUS-163-21880-11072716

PATIENT
  Sex: Male

DRUGS (13)
  1. REVLIMID [Suspect]
     Indication: MULTIPLE MYELOMA
     Dosage: 10 MILLIGRAM
     Route: 048
     Dates: start: 20080901, end: 20110601
  2. FLOMAX [Concomitant]
     Route: 065
  3. FOLIC ACID [Concomitant]
     Route: 065
  4. ZONISAMIDE [Concomitant]
     Route: 065
  5. IMODIUM [Concomitant]
     Route: 065
  6. EFFEXOR [Concomitant]
     Route: 065
  7. ACIDOPHILUS [Concomitant]
     Route: 065
  8. ACYCLOVIR [Concomitant]
     Route: 065
  9. COUMADIN [Concomitant]
     Route: 065
  10. MULTI-VITAMINS [Concomitant]
     Route: 065
  11. VITAMIN E [Concomitant]
     Route: 065
  12. VITAMIN D [Concomitant]
     Route: 065
  13. HYDROCORT [Concomitant]
     Route: 065

REACTIONS (1)
  - BONE LESION [None]
